FAERS Safety Report 8615079-0 (Version None)
Quarter: 2012Q3

REPORT INFORMATION
  Report Type: 
  Country: None (occurrence: None)
  Receive Date: 20120823
  Receipt Date: 20120817
  Transmission Date: 20120928
  Serious: Yes (Other)
  Sender: FDA-Public Use
  Company Number: PHEH2012US016238

PATIENT
  Sex: Female

DRUGS (2)
  1. VIVELLE-DOT [Suspect]
     Indication: HYSTERECTOMY
     Dosage: 0.1 MG, TWICE A WEEK
     Route: 062
  2. SOMA [Concomitant]
     Dosage: 350 MG, QD
     Route: 048

REACTIONS (6)
  - AMNESIA [None]
  - DYSMENORRHOEA [None]
  - NEOPLASM MALIGNANT [None]
  - CONDITION AGGRAVATED [None]
  - MOVEMENT DISORDER [None]
  - HEAD INJURY [None]
